FAERS Safety Report 21792776 (Version 2)
Quarter: 2023Q1

REPORT INFORMATION
  Report Type: Spontaneous
  Country: JP (occurrence: JP)
  Receive Date: 20221229
  Receipt Date: 20230209
  Transmission Date: 20230418
  Serious: Yes (Other)
  Sender: FDA-Public Use
  Company Number: JP-ALK-ABELLO A/S-2022AA004551

PATIENT

DRUGS (2)
  1. MITICURE [Suspect]
     Active Substance: DERMATOPHAGOIDES FARINAE\DERMATOPHAGOIDES PTERONYSSINUS
     Indication: Product used for unknown indication
     Route: 060
  2. CRYPTOMERIA JAPONICA POLLEN [Suspect]
     Active Substance: CRYPTOMERIA JAPONICA POLLEN
     Indication: Product used for unknown indication
     Route: 060

REACTIONS (3)
  - Glaucoma [Unknown]
  - Visual acuity reduced [Unknown]
  - Intraocular pressure increased [Unknown]
